FAERS Safety Report 24910988 (Version 2)
Quarter: 2025Q1

REPORT INFORMATION
  Report Type: Spontaneous
  Country: JP (occurrence: JP)
  Receive Date: 20250131
  Receipt Date: 20250206
  Transmission Date: 20250408
  Serious: Yes (Death, Other)
  Sender: OTSUKA
  Company Number: JP-OTSUKA-2025_002109

PATIENT
  Age: 81 Year
  Sex: Female

DRUGS (6)
  1. REXULTI [Suspect]
     Active Substance: BREXPIPRAZOLE
     Indication: Schizophrenia
     Route: 065
  2. REXULTI [Suspect]
     Active Substance: BREXPIPRAZOLE
     Route: 065
     Dates: start: 2023, end: 202310
  3. REXULTI [Suspect]
     Active Substance: BREXPIPRAZOLE
     Route: 065
  4. METHOTREXATE [Suspect]
     Active Substance: METHOTREXATE
     Indication: Product used for unknown indication
     Route: 048
  5. LEVOMEPROMAZINE MALEATE [Concomitant]
     Active Substance: LEVOMEPROMAZINE MALEATE
     Indication: Schizophrenia
     Route: 065
     Dates: start: 2023, end: 202310
  6. BLONANSERIN [Concomitant]
     Active Substance: BLONANSERIN
     Indication: Schizophrenia
     Route: 065

REACTIONS (1)
  - Death [Fatal]
